FAERS Safety Report 10584745 (Version 2)
Quarter: 2014Q4

REPORT INFORMATION
  Report Type: Spontaneous
  Country: SE (occurrence: SE)
  Receive Date: 20141114
  Receipt Date: 20141114
  Transmission Date: 20150529
  Serious: Yes (Hospitalization, Disabling)
  Sender: FDA-Public Use
  Company Number: SE-ABBVIE-11P-150-0854972-00

PATIENT
  Sex: Female

DRUGS (6)
  1. METHOTREXATE [Concomitant]
     Active Substance: METHOTREXATE
     Indication: PSORIATIC ARTHROPATHY
  2. ENBREL [Suspect]
     Active Substance: ETANERCEPT
     Indication: PSORIATIC ARTHROPATHY
     Route: 058
     Dates: start: 200901, end: 20090923
  3. REMICADE [Suspect]
     Active Substance: INFLIXIMAB
     Indication: PSORIATIC ARTHROPATHY
     Route: 065
  4. ENALAPRIL [Concomitant]
     Active Substance: ENALAPRIL
     Indication: PRODUCT USED FOR UNKNOWN INDICATION
  5. HUMIRA [Suspect]
     Active Substance: ADALIMUMAB
     Indication: PSORIATIC ARTHROPATHY
     Route: 065
  6. ORUDIS RETARD PROLONGED-RELEASE CAPSULE, HARD [Concomitant]
     Indication: PRODUCT USED FOR UNKNOWN INDICATION

REACTIONS (16)
  - Drug ineffective [Unknown]
  - Balance disorder [Unknown]
  - Pain [Unknown]
  - Hyperreflexia [Unknown]
  - Muscle spasms [Unknown]
  - Pain [Unknown]
  - Muscle rigidity [Not Recovered/Not Resolved]
  - Anti-GAD antibody positive [Unknown]
  - CSF immunoglobulin increased [Unknown]
  - Stiff person syndrome [Not Recovered/Not Resolved]
  - Back pain [Unknown]
  - Gait disturbance [Unknown]
  - Muscular weakness [Unknown]
  - Condition aggravated [Unknown]
  - Hypertonia [Unknown]
  - Fall [Unknown]

NARRATIVE: CASE EVENT DATE: 2009
